FAERS Safety Report 12310034 (Version 1)
Quarter: 2016Q2

REPORT INFORMATION
  Report Type: Spontaneous
  Country: US (occurrence: US)
  Receive Date: 20160427
  Receipt Date: 20160427
  Transmission Date: 20160815
  Serious: No
  Sender: FDA-Public Use
  Company Number: US-GLAXOSMITHKLINE-US2016049706

PATIENT
  Sex: Female

DRUGS (19)
  1. ATORVASTATIN [Concomitant]
     Active Substance: ATORVASTATIN
  2. IRON [Concomitant]
     Active Substance: IRON
  3. ISOSORBIDE MONONITRATE. [Concomitant]
     Active Substance: ISOSORBIDE MONONITRATE
  4. MAGNESIUM [Concomitant]
     Active Substance: MAGNESIUM
  5. ALBUTEROL + IPRATROPIUM NEBULE [Concomitant]
  6. NORCO [Concomitant]
     Active Substance: ACETAMINOPHEN\HYDROCODONE BITARTRATE
  7. CALCIUM [Concomitant]
     Active Substance: CALCIUM
  8. LOSARTAN. [Concomitant]
     Active Substance: LOSARTAN
  9. CARBIDOPA WITH LEVODOPA [Concomitant]
     Active Substance: CARBIDOPA\LEVODOPA
  10. DILTIAZEM [Concomitant]
     Active Substance: DILTIAZEM
  11. PLAVIX [Concomitant]
     Active Substance: CLOPIDOGREL BISULFATE
  12. LORAZEPAM. [Concomitant]
     Active Substance: LORAZEPAM
  13. CENTRUM SILVER [Concomitant]
     Active Substance: MINERALS\VITAMINS
  14. BREO ELLIPTA [Suspect]
     Active Substance: FLUTICASONE FUROATE\VILANTEROL TRIFENATATE
     Indication: ASTHMA
  15. LEVOTHYROXINE. [Concomitant]
     Active Substance: LEVOTHYROXINE
  16. MONTELUKAST [Concomitant]
     Active Substance: MONTELUKAST SODIUM
  17. ROPINIROLE. [Concomitant]
     Active Substance: ROPINIROLE
  18. VITAMIN D3 [Concomitant]
     Active Substance: CHOLECALCIFEROL
  19. BREO ELLIPTA [Suspect]
     Active Substance: FLUTICASONE FUROATE\VILANTEROL TRIFENATATE
     Indication: CHRONIC OBSTRUCTIVE PULMONARY DISEASE
     Dosage: 1 PUFF(S), QD
     Route: 055
     Dates: start: 201603

REACTIONS (2)
  - Heart rate increased [Not Recovered/Not Resolved]
  - Device use error [Unknown]
